FAERS Safety Report 23871870 (Version 3)
Quarter: 2024Q2

REPORT INFORMATION
  Report Type: Spontaneous
  Country: US (occurrence: US)
  Receive Date: 20240520
  Receipt Date: 20240617
  Transmission Date: 20240716
  Serious: Yes (Hospitalization, Other)
  Sender: FDA-Public Use
  Company Number: US-PCCINC-2024-PPL-000348

PATIENT

DRUGS (1)
  1. GABLOFEN [Suspect]
     Active Substance: BACLOFEN
     Indication: Muscle spasticity
     Dosage: 100 MICROGRAM/DAY
     Route: 037

REACTIONS (4)
  - Cerebrospinal fluid leakage [Unknown]
  - Withdrawal syndrome [Unknown]
  - Infection [Unknown]
  - Drug ineffective [Unknown]
